FAERS Safety Report 6299719-X (Version None)
Quarter: 2009Q3

REPORT INFORMATION
  Report Type: 
  Country: None (occurrence: None)
  Receive Date: 20090805
  Receipt Date: 20090805
  Transmission Date: 20100115
  Serious: Yes (Hospitalization)
  Sender: FDA-Public Use
  Company Number: None

PATIENT
  Age: 62 Year
  Sex: Male
  Weight: 103 kg

DRUGS (1)
  1. IOPROMIDE [Suspect]
     Indication: CORONARY ARTERY DISEASE
     Dosage: 90 ML ONCE IV
     Route: 042
     Dates: start: 20090722, end: 20090722

REACTIONS (6)
  - ANGIOEDEMA [None]
  - NAUSEA [None]
  - PRURITUS [None]
  - SKIN LESION [None]
  - URTICARIA [None]
  - VOMITING [None]
